FAERS Safety Report 19190487 (Version 1)
Quarter: 2021Q2

REPORT INFORMATION
  Report Type: Spontaneous
  Country: US (occurrence: US)
  Receive Date: 20210428
  Receipt Date: 20210428
  Transmission Date: 20210717
  Serious: No
  Sender: FDA-Public Use
  Company Number: US-PFIZER INC-2021417653

PATIENT
  Age: 60 Year
  Sex: Female

DRUGS (1)
  1. IBRANCE [Suspect]
     Active Substance: PALBOCICLIB
     Indication: BREAST CANCER FEMALE
     Dosage: 100 MG, CYCLIC (TAKE 100MG BY MOUTH ONE TIME A DAY FOR 21DAYS THEN STOP FOR 7DAYS. THIS WILL REPEAT)
     Route: 048
     Dates: start: 202012

REACTIONS (2)
  - Abdominal distension [Unknown]
  - Eructation [Unknown]
